FAERS Safety Report 7341682-4 (Version None)
Quarter: 2011Q1

REPORT INFORMATION
  Report Type: 
  Country: None (occurrence: None)
  Receive Date: 20110309
  Receipt Date: 20110303
  Transmission Date: 20110831
  Serious: Yes (Other)
  Sender: FDA-Public Use
  Company Number: US-PFIZER INC-2010176082

PATIENT
  Sex: Female
  Weight: 114 kg

DRUGS (20)
  1. ZOSYN [Suspect]
     Indication: PYREXIA
     Dosage: 3.375 G, UNK
     Route: 042
     Dates: start: 20101208, end: 20101210
  2. ALTEPLASE [Concomitant]
     Indication: HYPERTENSION
     Dosage: 1 MG, UNK
  3. LEVETIRACETAM [Concomitant]
     Indication: CONVULSION
     Dosage: 500 MG, UNK
     Route: 048
  4. BACTRIM [Suspect]
     Indication: PNEUMONIA
     Dosage: UNK
     Route: 048
     Dates: start: 20101208, end: 20101213
  5. IPRATROPIUM BROMIDE AND ALBUTEROL SULFATE [Concomitant]
     Indication: DYSPNOEA
     Dosage: UNK
     Route: 048
     Dates: start: 20101202
  6. FONDAPARINUX [Concomitant]
     Indication: THROMBOSIS PROPHYLAXIS
     Dosage: 2.5 MG, DAILY
     Route: 058
     Dates: start: 20101215
  7. HEPARIN [Concomitant]
     Indication: THROMBOSIS PROPHYLAXIS
     Dosage: 5000 UNITS
     Route: 058
     Dates: start: 20101202, end: 20101214
  8. CIMETIDINE [Concomitant]
     Dosage: UNK
  9. HEPARIN [Concomitant]
  10. INSULIN GLARGINE [Concomitant]
     Indication: DIABETES MELLITUS
     Dosage: 10-60 UNITS
     Route: 058
     Dates: start: 20101205
  11. LEVOTHYROXINE [Concomitant]
     Dosage: UNK
  12. LIDOCAINE [Concomitant]
     Indication: LOCAL ANAESTHESIA
     Dosage: 1 % 5 ML
     Dates: start: 20101210, end: 20101210
  13. SODIUM POLYSTYRENE SULFONATE [Concomitant]
     Indication: HYPERKALAEMIA
     Dosage: 15 G, DAILY
     Route: 048
     Dates: start: 20101209, end: 20101211
  14. INSULIN ASPART [Concomitant]
     Indication: DIABETES MELLITUS
     Dosage: UNK
     Dates: start: 20101205
  15. ALBUTEROL [Concomitant]
     Dosage: UNK
  16. VANCOMYCIN [Concomitant]
     Indication: PNEUMONIA
     Dosage: 1500 MG, 1X/DAY
     Route: 042
     Dates: start: 20101207, end: 20101208
  17. INSULIN [Concomitant]
     Indication: DIABETES MELLITUS
     Dosage: UNK
     Route: 042
     Dates: start: 20101202, end: 20101205
  18. TYLENOL [Concomitant]
     Indication: PYREXIA
     Dosage: 500 MG, DAILY
     Route: 048
     Dates: start: 20101208
  19. FAMOTIDINE [Concomitant]
     Indication: STRESS ULCER
     Dosage: 20 MG, 2X/DAY
     Dates: start: 20101202
  20. FONDAPARINUX [Concomitant]

REACTIONS (1)
  - PYREXIA [None]
